FAERS Safety Report 6881801-7 (Version None)
Quarter: 2010Q3

REPORT INFORMATION
  Report Type: 
  Country: None (occurrence: None)
  Receive Date: 20100729
  Receipt Date: 20100720
  Transmission Date: 20110219
  Serious: Yes (Other)
  Sender: FDA-Public Use
  Company Number: US-PFIZER INC-2010071965

PATIENT
  Sex: Male
  Weight: 74.8 kg

DRUGS (1)
  1. TOVIAZ [Suspect]
     Indication: HYPERTONIC BLADDER
     Dosage: 4 MG, 1X/DAY
     Route: 048
     Dates: start: 20100524, end: 20100606

REACTIONS (3)
  - BLADDER PAIN [None]
  - HYPERTENSION [None]
  - URINARY RETENTION [None]
